FAERS Safety Report 25774172 (Version 1)
Quarter: 2025Q3

REPORT INFORMATION
  Report Type: Spontaneous
  Country: CN (occurrence: CN)
  Receive Date: 20250908
  Receipt Date: 20250908
  Transmission Date: 20251021
  Serious: Yes (Hospitalization)
  Sender: JOHNSON AND JOHNSON
  Company Number: CN-JNJFOC-20250837949

PATIENT
  Age: 79 Year
  Sex: Male
  Weight: 67 kg

DRUGS (9)
  1. ABIRATERONE ACETATE [Suspect]
     Active Substance: ABIRATERONE ACETATE
     Indication: Prostate cancer metastatic
     Route: 048
     Dates: start: 202004, end: 202404
  2. PACLITAXEL [Suspect]
     Active Substance: PACLITAXEL
     Indication: Prostate cancer
     Dosage: 0.2G D1,8, Q21D
     Route: 048
     Dates: start: 202310
  3. PACLITAXEL [Suspect]
     Active Substance: PACLITAXEL
     Indication: Metastases to bone
  4. CISPLATIN [Suspect]
     Active Substance: CISPLATIN
     Indication: Prostate cancer
     Dosage: 20 MG D1,8 Q21D
     Route: 048
     Dates: start: 202310
  5. CISPLATIN [Suspect]
     Active Substance: CISPLATIN
     Indication: Metastases to bone
  6. RIVOCERANIB [Suspect]
     Active Substance: RIVOCERANIB
     Indication: Prostate cancer
     Dosage: 0.2G D1,8, Q21D
     Route: 048
     Dates: start: 202310
  7. RIVOCERANIB [Suspect]
     Active Substance: RIVOCERANIB
     Indication: Metastases to bone
  8. ZOLEDRONIC ACID [Concomitant]
     Active Substance: ZOLEDRONIC ACID
     Indication: Metastases to bone
     Dates: start: 202304
  9. DENOSUMAB [Concomitant]
     Active Substance: DENOSUMAB
     Indication: Metastases to bone
     Dates: start: 202304

REACTIONS (2)
  - Myelosuppression [Recovering/Resolving]
  - Nausea [Recovering/Resolving]

NARRATIVE: CASE EVENT DATE: 20231001
